FAERS Safety Report 9045911 (Version 1)
Quarter: 2013Q1

REPORT INFORMATION
  Report Type: Report from Study
  Country: US (occurrence: US)
  Receive Date: 20130201
  Receipt Date: 20130201
  Transmission Date: 20140127
  Serious: No
  Sender: FDA-Public Use
  Company Number: US-ABBOTT-12P-163-1022846-00

PATIENT
  Sex: Female
  Weight: 93.07 kg

DRUGS (21)
  1. HUMIRA [Suspect]
     Indication: RHEUMATOID ARTHRITIS
     Dates: start: 201207
  2. ATORVASTATIN [Concomitant]
     Indication: BLOOD CHOLESTEROL INCREASED
  3. LEVOTHYROXINE [Concomitant]
     Indication: THYROID DISORDER
  4. RECLAST [Concomitant]
     Indication: OSTEOPOROSIS
  5. FOLIC ACID [Concomitant]
     Indication: VITAMIN SUPPLEMENTATION
  6. ESTRACE [Concomitant]
     Indication: MENOPAUSE
  7. ASPIRIN [Concomitant]
     Indication: PRODUCT USED FOR UNKNOWN INDICATION
  8. SEROQUEL [Concomitant]
     Indication: DEPRESSION
  9. PREDNISONE [Concomitant]
     Indication: RHEUMATOID ARTHRITIS
  10. METFORMIN [Concomitant]
     Indication: DIABETES MELLITUS
  11. CLONAZEPAM [Concomitant]
     Indication: ANXIETY
  12. FUROSEMIDE [Concomitant]
     Indication: FLUID RETENTION
  13. ZOLPIDEM [Concomitant]
     Indication: INSOMNIA
  14. SERTRALINE [Concomitant]
     Indication: DEPRESSION
  15. VITAMIN B COMP [Concomitant]
     Indication: VITAMIN SUPPLEMENTATION
  16. IMITREX [Concomitant]
     Indication: MIGRAINE
  17. INDOCIN [Concomitant]
     Indication: MIGRAINE
  18. ALLEGRA [Concomitant]
     Indication: HYPERSENSITIVITY
  19. ONDANSETRON [Concomitant]
     Indication: NAUSEA
  20. DEXAMETHAZONE [Concomitant]
     Indication: MIGRAINE
  21. MIRALAX [Concomitant]
     Indication: CONSTIPATION

REACTIONS (2)
  - Vertigo [Not Recovered/Not Resolved]
  - Bronchitis [Recovered/Resolved]
